FAERS Safety Report 5066478-8 (Version None)
Quarter: 2006Q3

REPORT INFORMATION
  Report Type: 
  Country: None (occurrence: None)
  Receive Date: 20060717
  Receipt Date: 20050603
  Transmission Date: 20061208
  Serious: Yes (Other)
  Sender: FDA-Public Use
  Company Number: 2005-06-0284

PATIENT
  Age: 80 Year
  Sex: Female

DRUGS (4)
  1. INTEGRILIN [Suspect]
     Indication: PERCUTANEOUS CORONARY INTERVENTION
     Dosage: INTRAVENOUS
     Route: 042
     Dates: start: 20050101
  2. LOVENOX [Suspect]
     Indication: PERCUTANEOUS CORONARY INTERVENTION
     Dosage: INTRAVENOUS
     Route: 042
     Dates: start: 20050101
  3. LOVENOX [Suspect]
     Indication: PERCUTANEOUS CORONARY INTERVENTION
     Dosage: INTRAVENOUS
     Route: 042
     Dates: start: 20050501
  4. HEPARIN [Suspect]

REACTIONS (3)
  - CORONARY ARTERY DISEASE [None]
  - CORONARY ARTERY REOCCLUSION [None]
  - THROMBOCYTOPENIA [None]
